FAERS Safety Report 7179729-0 (Version None)
Quarter: 2010Q4

REPORT INFORMATION
  Report Type: 
  Country: None (occurrence: None)
  Receive Date: 20101221
  Receipt Date: 20101215
  Transmission Date: 20110411
  Serious: Yes (Hospitalization)
  Sender: FDA-Public Use
  Company Number: JP-ALEXION-A201001423

PATIENT
  Age: 78 Year
  Sex: Female

DRUGS (5)
  1. SOLIRIS [Suspect]
     Indication: PAROXYSMAL NOCTURNAL HAEMOGLOBINURIA
     Dosage: 600 MG, QW
     Route: 042
     Dates: start: 20101007
  2. ARANESP [Concomitant]
     Dosage: 50 UG, Q2W
     Dates: start: 20101001
  3. KREMEZIN [Concomitant]
     Dosage: UNK
     Dates: start: 20090409
  4. MICARDIS [Concomitant]
     Dosage: UNK
     Dates: start: 20100107
  5. NESP [Concomitant]
     Dosage: UNK
     Dates: start: 20101014

REACTIONS (5)
  - ABDOMINAL PAIN [None]
  - CHOLELITHIASIS [None]
  - DECREASED APPETITE [None]
  - HYPERPLASTIC CHOLECYSTOPATHY [None]
  - NAUSEA [None]
